FAERS Safety Report 20823170 (Version 1)
Quarter: 2022Q2

REPORT INFORMATION
  Report Type: Spontaneous
  Country: US (occurrence: US)
  Receive Date: 20220513
  Receipt Date: 20220513
  Transmission Date: 20220721
  Serious: Yes (Hospitalization)
  Sender: FDA-Public Use
  Company Number: US-SA-SAC20220429000844

PATIENT
  Age: 79 Year
  Sex: Female

DRUGS (1)
  1. CAPRELSA [Suspect]
     Active Substance: VANDETANIB
     Indication: Thyroid disorder
     Dosage: 300 MG, QD
     Route: 048
     Dates: start: 20220329

REACTIONS (4)
  - Hospitalisation [Unknown]
  - Mineral deficiency [Unknown]
  - Confusional state [Unknown]
  - Product dose omission issue [Unknown]
